FAERS Safety Report 4353724-9 (Version None)
Quarter: 2004Q2

REPORT INFORMATION
  Report Type: 
  Country: None (occurrence: None)
  Receive Date: 20040430
  Receipt Date: 20040106
  Transmission Date: 20050107
  Serious: No
  Sender: FDA-Public Use
  Company Number: 203982

PATIENT
  Age: 47 Year
  Sex: Female
  Weight: 76.6 kg

DRUGS (9)
  1. XOLAIR [Suspect]
     Indication: ASTHMA
     Dosage: 150 MG, 1/MONTH, SUBCUTANEOUS
     Route: 058
     Dates: start: 20030813
  2. ACCOLATE [Concomitant]
  3. WELLBUTRIN [Concomitant]
  4. FORADIL [Concomitant]
  5. DEMADEX [Concomitant]
  6. FLONASE [Concomitant]
  7. PULMICORT [Concomitant]
  8. ATIVAN [Concomitant]
  9. DUONEB (ALBUTEROL, ALBUTEROL SULFATE, IPRATROPIUM BROMIDE) [Concomitant]

REACTIONS (1)
  - HOT FLUSH [None]
